FAERS Safety Report 5346018-6 (Version None)
Quarter: 2007Q2

REPORT INFORMATION
  Report Type: 
  Country: None (occurrence: None)
  Receive Date: 20070605
  Receipt Date: 20070523
  Transmission Date: 20071010
  Serious: Yes (Death, Other)
  Sender: FDA-Public Use
  Company Number: US-ELI_LILLY_AND_COMPANY-US200705001833

PATIENT
  Age: 25 Year
  Sex: Male
  Weight: 71.655 kg

DRUGS (6)
  1. CYMBALTA [Suspect]
     Indication: BIPOLAR II DISORDER
     Dosage: 30 MG, UNK
  2. LAMICTAL [Concomitant]
     Dosage: 200 MG, UNK
     Dates: end: 20070125
  3. LAMICTAL [Concomitant]
     Dosage: 200 MG, UNK
     Dates: start: 20070125
  4. AMBIEN [Concomitant]
     Dosage: 10 MG, UNK
  5. ASCORBIC ACID [Concomitant]
  6. RAMELTEON [Concomitant]
     Dosage: 8 MG, UNK
     Dates: end: 20070101

REACTIONS (5)
  - ANXIETY [None]
  - FEELING ABNORMAL [None]
  - INSOMNIA [None]
  - MEMORY IMPAIRMENT [None]
  - OVERDOSE [None]
